FAERS Safety Report 5076504-8 (Version None)
Quarter: 2006Q3

REPORT INFORMATION
  Report Type: 
  Country: None (occurrence: None)
  Receive Date: 20060725
  Receipt Date: 20060530
  Transmission Date: 20061208
  Serious: No
  Sender: FDA-Public Use
  Company Number: 200613805BWH

PATIENT
  Age: 56 Year
  Sex: Male

DRUGS (5)
  1. NEXAVAR [Suspect]
     Indication: RENAL CELL CARCINOMA STAGE UNSPECIFIED
     Dosage: 400 MG, BID, ORAL
     Route: 048
     Dates: start: 20050701
  2. ZOMETA [Concomitant]
  3. NEURONTIN [Concomitant]
  4. COUMADIN [Concomitant]
  5. DITROPAN [Concomitant]

REACTIONS (2)
  - BLISTER [None]
  - MUSCULAR WEAKNESS [None]
